FAERS Safety Report 9621391 (Version 2)
Quarter: 2014Q1

REPORT INFORMATION
  Report Type: Spontaneous
  Country: US (occurrence: US)
  Receive Date: 20131015
  Receipt Date: 20140107
  Transmission Date: 20141002
  Serious: No
  Sender: FDA-Public Use
  Company Number: US-PFIZER INC-2013292936

PATIENT
  Age: 61 Year
  Sex: Female

DRUGS (10)
  1. EFFEXOR [Suspect]
     Dosage: UNK
  2. NORVASC [Suspect]
     Dosage: UNK
  3. METFORMIN HCL [Suspect]
     Dosage: UNK
  4. ADDERALL [Suspect]
     Dosage: UNK
  5. GLYBURIDE [Suspect]
     Dosage: UNK
  6. SEROQUEL [Suspect]
     Dosage: UNK
  7. PERCOCET [Suspect]
     Dosage: UNK
  8. PERCODAN [Suspect]
     Dosage: UNK
  9. COMPAZINE [Suspect]
     Dosage: UNK
  10. COMBIVENT [Suspect]
     Dosage: UNK

REACTIONS (2)
  - Drug hypersensitivity [Unknown]
  - Dermatitis contact [Unknown]
